FAERS Safety Report 13732641 (Version 1)
Quarter: 2017Q3

REPORT INFORMATION
  Report Type: Spontaneous
  Country: US (occurrence: US)
  Receive Date: 20170707
  Receipt Date: 20170707
  Transmission Date: 20171127
  Serious: Yes (Other)
  Sender: FDA-Public Use
  Company Number: US-SA-2017SA114255

PATIENT
  Age: 43 Year
  Sex: Male

DRUGS (1)
  1. ALLEGRA [Suspect]
     Active Substance: FEXOFENADINE HYDROCHLORIDE
     Route: 048

REACTIONS (4)
  - Product use issue [Unknown]
  - Product use complaint [Unknown]
  - Palpitations [Unknown]
  - Heart rate increased [Unknown]
